FAERS Safety Report 9820308 (Version 1)
Quarter: 2014Q1

REPORT INFORMATION
  Report Type: Spontaneous
  Country: US (occurrence: None)
  Receive Date: 20140113
  Receipt Date: 20140113
  Transmission Date: 20141002
  Serious: Yes (Death)
  Sender: FDA-Public Use
  Company Number: None

PATIENT
  Age: 5 Month
  Sex: Male
  Weight: 5.44 kg

DRUGS (2)
  1. BABY TEETHING [Suspect]
     Indication: TEETHING
     Dates: start: 20131202
  2. BABY TEETHING [Suspect]
     Indication: DISCOMFORT
     Dates: start: 20131202

REACTIONS (3)
  - Body temperature increased [None]
  - Cardio-respiratory arrest [None]
  - Death [None]
